FAERS Safety Report 7101200-2 (Version None)
Quarter: 2010Q4

REPORT INFORMATION
  Report Type: 
  Country: None (occurrence: None)
  Receive Date: 20101115
  Receipt Date: 20100301
  Transmission Date: 20110411
  Serious: Yes (Other)
  Sender: FDA-Public Use
  Company Number: US-ASTRAZENECA-2009UW10754

PATIENT
  Age: 21137 Day
  Sex: Male

DRUGS (11)
  1. SEROQUEL [Suspect]
     Dosage: 100 MG-200MG
     Route: 048
     Dates: start: 20000606
  2. ARIPIPRAZOLE [Concomitant]
     Route: 048
     Dates: start: 20060817
  3. CODEINE PHOSPHATE AND ACETAMINOPHEN [Concomitant]
     Indication: PAIN
     Dosage: 30/300 TAKE 1 TABLET EVERY 8 HOURS AS NEEDED
     Route: 048
     Dates: start: 20060817
  4. FELODIPINE [Concomitant]
     Route: 048
     Dates: start: 20060817
  5. FINASTERIDE [Concomitant]
     Indication: PROSTATIC DISORDER
     Route: 048
     Dates: start: 20060817
  6. GLIPIZIDE [Concomitant]
     Indication: DIABETES MELLITUS
     Dosage: 5 MG TAKE 2.5 MG=1/2 TAB EVERY DAY, 30 MINUTES BEFORE THE MEAL
     Route: 048
     Dates: start: 20060817
  7. LISINOPRIL AND HYDROCHLOROTHIAZIDE [Concomitant]
     Dosage: 12.5 MG/20 MG 2 TAB EVERY MORNING
     Route: 048
     Dates: start: 20060817
  8. SIMVASTATIN [Concomitant]
     Indication: BLOOD CHOLESTEROL INCREASED
     Dosage: 80 MG TAKE ONE-HALF TAB  AT BEDTIME
     Route: 048
     Dates: start: 20060817
  9. TERAZOSIN HCL [Concomitant]
     Route: 048
     Dates: start: 20060817
  10. VARDENAFIL HCL [Concomitant]
     Dosage: 20 MG TAKE ONE-HALF TABLET 1 HOUR PRIOR TO SEXUAL INTERCOURSE-MAX OF 4 DOSES
     Route: 048
     Dates: start: 20060817
  11. PROPOXYPHENE HCL AND ACETAMINOPHEN [Concomitant]
     Indication: PAIN
     Dosage: 100/650 MG TAKE 1 TABLET EVERY 6 HOURS AS NEEDED NOT TO EXCEED 6 TABLETS PER DAY
     Route: 048
     Dates: start: 20040929

REACTIONS (3)
  - ORGANIC ERECTILE DYSFUNCTION [None]
  - PSYCHOGENIC ERECTILE DYSFUNCTION [None]
  - TYPE 2 DIABETES MELLITUS [None]
